FAERS Safety Report 7628177-5 (Version None)
Quarter: 2011Q3

REPORT INFORMATION
  Report Type: 
  Country: None (occurrence: None)
  Receive Date: 20110720
  Receipt Date: 20110720
  Transmission Date: 20111222
  Serious: Yes (Other)
  Sender: FDA-Public Use
  Company Number: None

PATIENT
  Age: 34 Year
  Sex: Female

DRUGS (1)
  1. LAMOTRIGINE [Suspect]
     Dosage: 25MG QD ORAL
     Route: 048
     Dates: start: 20070101, end: 20110101

REACTIONS (2)
  - DRUG INEFFECTIVE [None]
  - MUSCLE TWITCHING [None]
